FAERS Safety Report 9555182 (Version 1)
Quarter: 2013Q3

REPORT INFORMATION
  Report Type: Spontaneous
  Country: US (occurrence: None)
  Receive Date: 20130925
  Receipt Date: 20130925
  Transmission Date: 20140515
  Serious: Yes (Disabling)
  Sender: FDA-Public Use
  Company Number: None

PATIENT
  Age: 69 Year
  Sex: Female
  Weight: 56.25 kg

DRUGS (8)
  1. CLINDAMYCIN HCL [Suspect]
     Indication: DIVERTICULITIS
     Dosage: 1 PILL
     Route: 048
     Dates: start: 20130315, end: 20130318
  2. CLINDAMYCIN HCL [Suspect]
     Indication: INFECTION
     Dosage: 1 PILL
     Route: 048
     Dates: start: 20130315, end: 20130318
  3. MULTI-VITAMIN [Concomitant]
  4. VIT C [Concomitant]
  5. VIT D [Concomitant]
  6. CALCIUM [Concomitant]
  7. OMEGA-3 [Concomitant]
  8. COQ10 [Concomitant]

REACTIONS (8)
  - Defaecation urgency [None]
  - Flatulence [None]
  - Mucous stools [None]
  - Clostridium difficile infection [None]
  - Abdominal pain upper [None]
  - Dyspepsia [None]
  - Abdominal pain upper [None]
  - Stress [None]
